FAERS Safety Report 7782083-4 (Version None)
Quarter: 2011Q3

REPORT INFORMATION
  Report Type: 
  Country: None (occurrence: None)
  Receive Date: 20110927
  Receipt Date: 20110916
  Transmission Date: 20111222
  Serious: Yes (Hospitalization)
  Sender: FDA-Public Use
  Company Number: KR-ELI_LILLY_AND_COMPANY-KR201109004776

PATIENT
  Age: 56 Year
  Sex: Male
  Weight: 73 kg

DRUGS (6)
  1. HUMALOG MIX 75/25 [Suspect]
     Dosage: 20 U, EACH EVENING
     Route: 058
     Dates: start: 20110701, end: 20110908
  2. ASPIRIN [Concomitant]
     Dosage: UNK
     Dates: start: 20060101
  3. HUMALOG MIX 75/25 [Suspect]
     Dosage: 30 U, EACH MORNING
     Route: 058
     Dates: start: 20110908
  4. ANTIHYPERTENSIVES [Concomitant]
     Indication: HYPERTENSION
     Dosage: UNK
     Dates: start: 20060101
  5. HUMALOG MIX 75/25 [Suspect]
     Dosage: 8 U, EACH EVENING
     Route: 058
     Dates: start: 20110908
  6. HUMALOG MIX 75/25 [Suspect]
     Indication: TYPE 2 DIABETES MELLITUS
     Dosage: 40 U, EACH MORNING
     Route: 058
     Dates: start: 20110701, end: 20110908

REACTIONS (1)
  - HYPERGLYCAEMIA [None]
